FAERS Safety Report 19359415 (Version 2)
Quarter: 2021Q2

REPORT INFORMATION
  Report Type: Spontaneous
  Country: DE (occurrence: DE)
  Receive Date: 20210601
  Receipt Date: 20210611
  Transmission Date: 20210717
  Serious: Yes (Life-Threatening, Hospitalization, Other)
  Sender: FDA-Public Use
  Company Number: DE-BAUSCH-BL-2021-018594

PATIENT
  Sex: Male

DRUGS (13)
  1. RITUXIMAB. [Suspect]
     Active Substance: RITUXIMAB
     Indication: HEPATOSPLENOMEGALY
  2. RITUXIMAB. [Suspect]
     Active Substance: RITUXIMAB
     Indication: PANCYTOPENIA
  3. SIROLIMUS. [Suspect]
     Active Substance: SIROLIMUS
     Route: 065
  4. DEXAMETHASONE. [Suspect]
     Active Substance: DEXAMETHASONE
     Indication: PANCYTOPENIA
     Route: 065
  5. RITUXIMAB. [Suspect]
     Active Substance: RITUXIMAB
     Indication: PLEURAL EFFUSION
     Route: 065
     Dates: start: 202001, end: 202003
  6. DEXAMETHASONE. [Suspect]
     Active Substance: DEXAMETHASONE
     Indication: CONDITION AGGRAVATED
  7. RITUXIMAB. [Suspect]
     Active Substance: RITUXIMAB
     Indication: ASCITES
  8. SIROLIMUS. [Suspect]
     Active Substance: SIROLIMUS
     Indication: ANAMNESTIC REACTION
     Dosage: UNK
     Route: 065
     Dates: start: 201807, end: 202002
  9. DEXAMETHASONE. [Suspect]
     Active Substance: DEXAMETHASONE
     Indication: ASCITES
  10. DEXAMETHASONE. [Suspect]
     Active Substance: DEXAMETHASONE
     Indication: HEPATOSPLENOMEGALY
  11. RITUXIMAB. [Suspect]
     Active Substance: RITUXIMAB
     Indication: EPSTEIN-BARR VIRUS INFECTION REACTIVATION
  12. DEXAMETHASONE. [Suspect]
     Active Substance: DEXAMETHASONE
     Indication: PLEURAL EFFUSION
  13. RITUXIMAB. [Suspect]
     Active Substance: RITUXIMAB
     Indication: CONDITION AGGRAVATED

REACTIONS (18)
  - Product use in unapproved indication [Unknown]
  - Pyrexia [Unknown]
  - Intestinal perforation [Unknown]
  - Diarrhoea haemorrhagic [Unknown]
  - Gastrointestinal haemorrhage [Unknown]
  - Dehydration [Unknown]
  - Hepatosplenomegaly [Unknown]
  - Osteonecrosis [Unknown]
  - Immunodeficiency [Unknown]
  - Ascites [Unknown]
  - Histology abnormal [Unknown]
  - Pleural effusion [Unknown]
  - Autoimmune pancytopenia [Unknown]
  - Condition aggravated [Unknown]
  - Clostridium difficile colitis [Unknown]
  - Transplant failure [Unknown]
  - Sepsis [Unknown]
  - Hepatic enzyme increased [Unknown]

NARRATIVE: CASE EVENT DATE: 202001
